FAERS Safety Report 19495631 (Version 1)
Quarter: 2021Q3

REPORT INFORMATION
  Report Type: Spontaneous
  Country: GB (occurrence: GB)
  Receive Date: 20210706
  Receipt Date: 20210706
  Transmission Date: 20211014
  Serious: Yes (Other)
  Sender: FDA-Public Use
  Company Number: GB-TEVA-2021-GB-1929630

PATIENT
  Age: 53 Year
  Sex: Female
  Weight: 52.61 kg

DRUGS (4)
  1. VITAMIN B12 [Concomitant]
     Active Substance: CYANOCOBALAMIN
  2. MULTIVITAMIN [Concomitant]
     Active Substance: VITAMINS
  3. TEVA UK LEVOTHYROXINE [Suspect]
     Active Substance: LEVOTHYROXINE
     Indication: THYROIDECTOMY
     Dosage: 125 ALTERNATE DAYS TO 100 OTHER DAYS
     Route: 048
     Dates: start: 20210501, end: 20210615
  4. BIOTIN [Concomitant]
     Active Substance: BIOTIN

REACTIONS (5)
  - Headache [Unknown]
  - Feeling abnormal [Unknown]
  - Pain [Not Recovered/Not Resolved]
  - Fatigue [Not Recovered/Not Resolved]
  - Depression [Unknown]

NARRATIVE: CASE EVENT DATE: 20210516
